FAERS Safety Report 14838242 (Version 1)
Quarter: 2018Q2

REPORT INFORMATION
  Report Type: Spontaneous
  Country: US (occurrence: US)
  Receive Date: 20180417
  Receipt Date: 20180417
  Transmission Date: 20180711
  Serious: Yes (Hospitalization)
  Sender: FDA-Public Use
  Company Number: None

PATIENT
  Age: 56 Year
  Sex: Male
  Weight: 74.25 kg

DRUGS (6)
  1. ANDROGEL [Suspect]
     Active Substance: TESTOSTERONE
     Indication: BLOOD TESTOSTERONE DECREASED
     Dosage: 60 PUMPS; TOPICAL?
     Route: 061
     Dates: start: 20090930, end: 20171004
  2. FISH OIL [Concomitant]
     Active Substance: FISH OIL
  3. ONE-A-DAY MULTIVITAMIN [Concomitant]
  4. FLAXSEED [Concomitant]
     Active Substance: FLAX SEED
  5. ELIQUIS [Concomitant]
     Active Substance: APIXABAN
  6. ARMOUR THYROID [Concomitant]
     Active Substance: THYROID, PORCINE

REACTIONS (2)
  - Thrombosis [None]
  - Pulmonary embolism [None]

NARRATIVE: CASE EVENT DATE: 20171004
